FAERS Safety Report 22239830 (Version 3)
Quarter: 2024Q1

REPORT INFORMATION
  Report Type: Spontaneous
  Country: US (occurrence: US)
  Receive Date: 20230421
  Receipt Date: 20240130
  Transmission Date: 20240409
  Serious: No
  Sender: FDA-Public Use
  Company Number: US-SA-SAC20230419000333

PATIENT
  Sex: Female

DRUGS (1)
  1. DUPIXENT [Suspect]
     Active Substance: DUPILUMAB
     Indication: Dermatitis atopic
     Dosage: 300 MG, QOW
     Route: 058

REACTIONS (6)
  - Alopecia [Unknown]
  - Eczema [Unknown]
  - Vitamin D decreased [Unknown]
  - Pain in extremity [Unknown]
  - Arthralgia [Unknown]
  - Inappropriate schedule of product administration [Unknown]
